FAERS Safety Report 4855013-2 (Version None)
Quarter: 2005Q4

REPORT INFORMATION
  Report Type: 
  Country: None (occurrence: None)
  Receive Date: 20051214
  Receipt Date: 20051205
  Transmission Date: 20060501
  Serious: Yes (Death)
  Sender: FDA-Public Use
  Company Number: 2005JP002360

PATIENT
  Age: 57 Year
  Sex: Female

DRUGS (3)
  1. PROGRAF [Suspect]
     Indication: LIVER TRANSPLANT
  2. CELLCEPT [Concomitant]
  3. METHYLPREDNISOLONE [Concomitant]

REACTIONS (3)
  - COMPLICATIONS OF TRANSPLANTED LIVER [None]
  - HEPATIC FAILURE [None]
  - PORTAL HYPERTENSION [None]
